FAERS Safety Report 16934857 (Version 1)
Quarter: 2019Q4

REPORT INFORMATION
  Report Type: Spontaneous
  Country: US (occurrence: US)
  Receive Date: 20191018
  Receipt Date: 20191018
  Transmission Date: 20200122
  Serious: Yes (Other)
  Sender: FDA-Public Use
  Company Number: None

PATIENT
  Sex: Female

DRUGS (2)
  1. GABAPENTIN 100MG [Suspect]
     Active Substance: GABAPENTIN
  2. CLARINEX [Suspect]
     Active Substance: DESLORATADINE

REACTIONS (2)
  - Therapy non-responder [None]
  - Rash [None]
